FAERS Safety Report 8826088 (Version 1)
Quarter: 2012Q4

REPORT INFORMATION
  Report Type: 
  Country: US (occurrence: US)
  Receive Date: 20121008
  Receipt Date: 20121008
  Transmission Date: 20130627
  Serious: Yes (Death, Hospitalization)
  Sender: FDA-Public Use
  Company Number: US-JNJFOC-20121003703

PATIENT
  Age: 5 None
  Sex: Male

DRUGS (1)
  1. TYLENOL W/CODEINE [Suspect]
     Indication: ANALGESIC THERAPY
     Route: 048

REACTIONS (2)
  - Death [Fatal]
  - Hepatic failure [Unknown]
